FAERS Safety Report 17834088 (Version 1)
Quarter: 2020Q2

REPORT INFORMATION
  Report Type: Spontaneous
  Country: US (occurrence: US)
  Receive Date: 20200527
  Receipt Date: 20200527
  Transmission Date: 20200714
  Serious: No
  Sender: FDA-Public Use
  Company Number: None

PATIENT
  Age: 65 Year
  Sex: Female
  Weight: 54.43 kg

DRUGS (1)
  1. DOXYCYCLATE HYCLATE 100MG CAPSULE [Suspect]
     Active Substance: DOXYCYCLINE HYCLATE

REACTIONS (7)
  - Throat irritation [None]
  - Dyspnoea [None]
  - Chest pain [None]
  - Ear discomfort [None]
  - Nausea [None]
  - Abdominal discomfort [None]
  - Vomiting [None]

NARRATIVE: CASE EVENT DATE: 20200327
